FAERS Safety Report 8155490-8 (Version None)
Quarter: 2012Q1

REPORT INFORMATION
  Report Type: 
  Country: None (occurrence: None)
  Receive Date: 20120222
  Receipt Date: 20120213
  Transmission Date: 20120608
  Serious: Yes (Death, Hospitalization, Other)
  Sender: FDA-Public Use
  Company Number: US-ELI_LILLY_AND_COMPANY-US201105006481

PATIENT
  Sex: Female
  Weight: 31.746 kg

DRUGS (18)
  1. FORTEO [Suspect]
     Indication: OSTEOPOROSIS
     Dosage: 20 UG, QD
     Dates: start: 20101101
  2. REQUIP [Concomitant]
  3. VITAMINS NOS [Concomitant]
  4. VITAMIN B-12 [Concomitant]
  5. FORTEO [Suspect]
     Dosage: 20 UG, QD
  6. FORTEO [Suspect]
     Dosage: 20 UG, QD
     Dates: end: 20120117
  7. OMEPRAZOLE [Concomitant]
  8. FORTEO [Suspect]
     Dosage: 20 UG, QD
  9. FORTEO [Suspect]
     Dosage: 20 UG, QD
  10. VITAMIN D [Concomitant]
  11. FORTEO [Suspect]
     Dosage: 20 UG, QD
  12. PRESERVISION EYE VITAMIN AND MINERAL SUPPL. [Concomitant]
  13. SINEMET [Concomitant]
  14. AMANTADINE HCL [Concomitant]
  15. TRAMADOL HCL [Concomitant]
  16. TOPROL-XL [Concomitant]
  17. LISINOPRIL [Concomitant]
  18. VITAMIN B6 [Concomitant]

REACTIONS (13)
  - ASTHENIA [None]
  - INVESTIGATION [None]
  - WEIGHT DECREASED [None]
  - DYSPNOEA [None]
  - HEART RATE INCREASED [None]
  - POSTURE ABNORMAL [None]
  - BLOOD PRESSURE INCREASED [None]
  - CONFUSIONAL STATE [None]
  - DEATH [None]
  - MOVEMENT DISORDER [None]
  - PARKINSON'S DISEASE [None]
  - MUSCULOSKELETAL STIFFNESS [None]
  - DECREASED APPETITE [None]
